FAERS Safety Report 7860565-4 (Version None)
Quarter: 2011Q4

REPORT INFORMATION
  Report Type: 
  Country: None (occurrence: None)
  Receive Date: 20111027
  Receipt Date: 20111017
  Transmission Date: 20120403
  Serious: Yes (Hospitalization, Other)
  Sender: FDA-Public Use
  Company Number: US-BAYER-2011-011266

PATIENT
  Age: 29 Year
  Sex: Female
  Weight: 83 kg

DRUGS (4)
  1. SIMVASTATIN [Concomitant]
     Dosage: 20 MG, UNK
     Route: 048
  2. EZETIMIBE [Concomitant]
     Dosage: 10 MG, UNK
  3. DROSPIRENONE AND ETHINYL ESTRADIOL [Suspect]
     Indication: CONTRACEPTION
     Dosage: UNK
     Dates: start: 20090801, end: 20100101
  4. YASMIN [Suspect]
     Indication: CONTRACEPTION
     Dosage: UNK
     Dates: start: 20070401, end: 20071001

REACTIONS (11)
  - ABDOMINAL PAIN [None]
  - GASTROINTESTINAL DISORDER [None]
  - GALLBLADDER PAIN [None]
  - NAUSEA [None]
  - CHOLELITHIASIS [None]
  - GALLBLADDER DISORDER [None]
  - DIARRHOEA [None]
  - VOMITING [None]
  - CHOLECYSTITIS CHRONIC [None]
  - CHOLECYSTITIS ACUTE [None]
  - POST CHOLECYSTECTOMY SYNDROME [None]
